FAERS Safety Report 7578513-3 (Version None)
Quarter: 2011Q2

REPORT INFORMATION
  Report Type: 
  Country: None (occurrence: None)
  Receive Date: 20110622
  Receipt Date: 20110615
  Transmission Date: 20111010
  Serious: Yes (Hospitalization)
  Sender: FDA-Public Use
  Company Number: A0931563A

PATIENT
  Age: 79 Year
  Sex: Female

DRUGS (5)
  1. DILTIAZEM HYDROCHLORIDE [Concomitant]
  2. CANDESARTAN CILEX+HCT [Concomitant]
  3. CALCIUM CARBONATE [Suspect]
     Indication: ABDOMINAL DISTENSION
     Dates: start: 20110409
  4. CALCIUM CARBONATE [Suspect]
     Indication: ABDOMINAL DISTENSION
     Dates: start: 20110409
  5. FLUTICASONE+SALMETEROL [Concomitant]

REACTIONS (9)
  - BLOOD GLUCOSE INCREASED [None]
  - THROAT IRRITATION [None]
  - DRUG INEFFECTIVE [None]
  - DYSPNOEA [None]
  - HYPOAESTHESIA ORAL [None]
  - THROAT TIGHTNESS [None]
  - LIP SWELLING [None]
  - URTICARIA [None]
  - HEPATIC ENZYME INCREASED [None]
